FAERS Safety Report 9679024 (Version 2)
Quarter: 2015Q1

REPORT INFORMATION
  Report Type: Spontaneous
  Country: DK (occurrence: DK)
  Receive Date: 20131108
  Receipt Date: 20150323
  Transmission Date: 20150721
  Serious: Yes (Other)
  Sender: FDA-Public Use
  Company Number: DK-PFIZER INC-2013318555

PATIENT
  Age: 72 Year
  Sex: Male
  Weight: 92 kg

DRUGS (11)
  1. PINEX [Concomitant]
     Active Substance: ACETAMINOPHEN
     Dosage: 1000 MG, 4X/DAY
     Route: 048
     Dates: start: 20130909, end: 20130915
  2. BRUFEN - SLOW RELEASE [Concomitant]
     Dosage: 800 MG, 2X/DAY
     Route: 048
     Dates: start: 20130910, end: 20130912
  3. KLEXANE [Concomitant]
     Active Substance: ENOXAPARIN
     Dosage: 40 MG, 1X/DAY
     Dates: start: 20130909, end: 20130913
  4. METOPROLOL SUCCINATE. [Concomitant]
     Active Substance: METOPROLOL SUCCINATE
     Dosage: 25 MG, 1X/DAY
     Route: 048
     Dates: start: 20130913, end: 20130914
  5. METOPROLOL SUCCINATE. [Concomitant]
     Active Substance: METOPROLOL SUCCINATE
     Dosage: 25 MG, 2X/DAY
     Route: 048
     Dates: start: 20130915, end: 20131106
  6. GABAPENTIN PFIZER [Suspect]
     Active Substance: GABAPENTIN
     Indication: POSTOPERATIVE ANALGESIA
     Dosage: 300 MG, 2X/DAY
     Route: 048
     Dates: start: 20130909, end: 20130914
  7. PERILAX [Concomitant]
     Dosage: 10 MG, 1X/DAY
     Dates: start: 20130910, end: 20130915
  8. HJERTEMAGNYL ^DAK^ [Concomitant]
     Dosage: 75 MG, 1X/DAY
     Route: 048
     Dates: start: 20130905
  9. METOPROLOL SUCCINATE. [Concomitant]
     Active Substance: METOPROLOL SUCCINATE
     Dosage: 50 MG, 1X/DAY
     Route: 048
     Dates: start: 20130905, end: 20130912
  10. PANTOLOC [Concomitant]
     Active Substance: PANTOPRAZOLE SODIUM
     Dosage: 40 MG, 1X/DAY
     Route: 048
     Dates: start: 20130909, end: 20130915
  11. CEFUROXIM [Concomitant]
     Active Substance: CEFUROXIME
     Dosage: 1500 MG, 3X/DAY
     Dates: start: 20130910, end: 20130912

REACTIONS (2)
  - Diplopia [Recovered/Resolved]
  - Extraocular muscle paresis [Recovered/Resolved]

NARRATIVE: CASE EVENT DATE: 20130911
